FAERS Safety Report 9755103 (Version 1)
Quarter: 2013Q4

REPORT INFORMATION
  Report Type: Spontaneous
  Country: US (occurrence: US)
  Receive Date: 20131213
  Receipt Date: 20131213
  Transmission Date: 20140711
  Serious: No
  Sender: FDA-Public Use
  Company Number: US-GLAXOSMITHKLINE-A1011649A

PATIENT
  Age: 21 Year
  Sex: Male

DRUGS (1)
  1. NICODERM CQ CLEAR 14MG [Suspect]
     Indication: EX-TOBACCO USER
     Dates: start: 20130204, end: 20130211

REACTIONS (7)
  - Pain in extremity [Not Recovered/Not Resolved]
  - Application site erythema [Not Recovered/Not Resolved]
  - Application site irritation [Not Recovered/Not Resolved]
  - Application site pruritus [Not Recovered/Not Resolved]
  - Hypersensitivity [Not Recovered/Not Resolved]
  - Application site pain [Not Recovered/Not Resolved]
  - Application site rash [Not Recovered/Not Resolved]
